FAERS Safety Report 7206726-9 (Version None)
Quarter: 2010Q4

REPORT INFORMATION
  Report Type: 
  Country: None (occurrence: None)
  Receive Date: 20101217
  Receipt Date: 20101208
  Transmission Date: 20110411
  Serious: Yes (Hospitalization)
  Sender: FDA-Public Use
  Company Number: 023135

PATIENT
  Sex: Female
  Weight: 62.5 kg

DRUGS (2)
  1. KEPPRA [Suspect]
     Dosage: 1000-1500 MG TWICE DAILY, ORAL; 2000 MG ORAL; 2250 MG, 1000MG-0-0-1250MG ORAL
     Route: 048
  2. STANGYL [Concomitant]

REACTIONS (18)
  - ANXIETY [None]
  - ASTHENIA [None]
  - BRADYPHRENIA [None]
  - DEPRESSION [None]
  - DIPLOPIA [None]
  - DISTURBANCE IN ATTENTION [None]
  - DRUG LEVEL BELOW THERAPEUTIC [None]
  - FATIGUE [None]
  - GAIT DISTURBANCE [None]
  - HEADACHE [None]
  - IMMUNODEFICIENCY [None]
  - IRRITABILITY [None]
  - MEMORY IMPAIRMENT [None]
  - NAUSEA [None]
  - PALPITATIONS [None]
  - SOMNOLENCE [None]
  - STRESS [None]
  - TREMOR [None]
